FAERS Safety Report 9170145 (Version 2)
Quarter: 2013Q2

REPORT INFORMATION
  Report Type: Spontaneous
  Country: ES (occurrence: None)
  Receive Date: 20130311
  Receipt Date: 20130417
  Transmission Date: 20140414
  Serious: Yes (Hospitalization)
  Sender: FDA-Public Use
  Company Number: AG-2013-0542

PATIENT
  Age: 76 Year
  Sex: Male
  Weight: 94.4 kg

DRUGS (7)
  1. CHLORAMBUCIL [Suspect]
     Indication: CHRONIC LYMPHOCYTIC LEUKAEMIA
     Dosage: 44 MG DAY 1 AND DAY 15/ 28 DAYS
     Route: 048
     Dates: start: 20111024
  2. OBINUTUZUMAB [Suspect]
     Indication: CHRONIC LYMPHOCYTIC LEUKAEMIA
     Dosage: UNKNOWN, (1000 MILLIGRAM, 1 IN 28
     Route: 042
     Dates: start: 20111024
  3. ZANIDIP (LERCANIDIPINE) (UNKNOWN) [Concomitant]
  4. SIMVASTATIN [Concomitant]
  5. ALLOPURINOL (ALLOPURINOL) (UNKNOWN) [Concomitant]
  6. FUROSEMIDE (FUROSEMIDE) (UNKNOWN) [Concomitant]
  7. NEORECORMON (ERYTHROPOIETIN) (UNKNOWN) [Concomitant]

REACTIONS (5)
  - Respiratory tract infection [None]
  - Aplasia [None]
  - Neutropenic sepsis [None]
  - Pneumothorax [None]
  - Bacterial test positive [None]
